FAERS Safety Report 9553057 (Version 1)
Quarter: 2013Q3

REPORT INFORMATION
  Report Type: Spontaneous
  Country: US (occurrence: US)
  Receive Date: 20130925
  Receipt Date: 20130925
  Transmission Date: 20140515
  Serious: Yes (Other)
  Sender: FDA-Public Use
  Company Number: US-ASTRAZENECA-2013SE69793

PATIENT
  Age: 70 Year
  Sex: Female
  Weight: 77.1 kg

DRUGS (9)
  1. NEXIUM [Suspect]
     Indication: GASTROOESOPHAGEAL REFLUX DISEASE
     Route: 048
     Dates: start: 2007
  2. ZESTRIL [Suspect]
     Indication: BLOOD PRESSURE ABNORMAL
     Route: 048
     Dates: start: 2011
  3. TOPROL XL [Suspect]
     Indication: BLOOD PRESSURE ABNORMAL
     Route: 048
     Dates: start: 2011
  4. CRESTOR [Suspect]
     Indication: ARTERIOSCLEROSIS
     Route: 048
     Dates: start: 2011
  5. BONEVA [Suspect]
     Route: 065
  6. ADVAIR [Concomitant]
     Indication: CHRONIC OBSTRUCTIVE PULMONARY DISEASE
  7. ALBUTEROL [Concomitant]
     Indication: CHRONIC OBSTRUCTIVE PULMONARY DISEASE
     Route: 055
  8. NITROGLYCERINE [Concomitant]
  9. RHYTHEMALL [Concomitant]
     Indication: CARDIAC FIBRILLATION

REACTIONS (23)
  - Glaucoma [Not Recovered/Not Resolved]
  - Femur fracture [Unknown]
  - Foot fracture [Unknown]
  - Pulmonary embolism [Unknown]
  - Deep vein thrombosis [Unknown]
  - Coagulation factor decreased [Recovered/Resolved]
  - Dyspnoea [Unknown]
  - Myocardial infarction [Recovered/Resolved]
  - Tremor [Recovered/Resolved]
  - Fall [Unknown]
  - Osteoporosis [Unknown]
  - Stress cardiomyopathy [Unknown]
  - Haematoma [Unknown]
  - Blood pressure increased [Unknown]
  - Buttock crushing [Unknown]
  - Mechanical urticaria [Unknown]
  - Head injury [Unknown]
  - Limb deformity [Unknown]
  - Pain in extremity [Unknown]
  - Psoriasis [Unknown]
  - Nausea [Recovered/Resolved]
  - Dizziness [Recovered/Resolved]
  - Abdominal discomfort [Unknown]
